FAERS Safety Report 26193621 (Version 1)
Quarter: 2025Q4

REPORT INFORMATION
  Report Type: Spontaneous
  Country: US (occurrence: None)
  Receive Date: 20251224
  Receipt Date: 20251224
  Transmission Date: 20260118
  Serious: Yes (Hospitalization)
  Sender: FDA-CTU
  Company Number: None

PATIENT
  Age: 40 Year
  Sex: Male
  Weight: 89.5 kg

DRUGS (3)
  1. FILGRASTIM [Suspect]
     Active Substance: FILGRASTIM
     Dates: end: 20210826
  2. IFOSFAMIDE [Suspect]
     Active Substance: IFOSFAMIDE
     Dates: end: 20210821
  3. TAXOL [Suspect]
     Active Substance: PACLITAXEL
     Dates: end: 20210819

REACTIONS (11)
  - Fall [None]
  - Blood stem cell harvest [None]
  - Sepsis [None]
  - Neutropenia [None]
  - Neuralgia [None]
  - Left ventricular hypertrophy [None]
  - Neutrophil count abnormal [None]
  - Haemoglobin decreased [None]
  - Platelet count abnormal [None]
  - White blood cell count abnormal [None]
  - Electrocardiogram QRS complex prolonged [None]

NARRATIVE: CASE EVENT DATE: 20210827
